FAERS Safety Report 4951705-5 (Version None)
Quarter: 2006Q1

REPORT INFORMATION
  Report Type: 
  Country: None (occurrence: None)
  Receive Date: 20060323
  Receipt Date: 20051108
  Transmission Date: 20060701
  Serious: Yes (Hospitalization)
  Sender: FDA-Public Use
  Company Number: US-GLAXOSMITHKLINE-A0581472A

PATIENT
  Age: 30 Year
  Sex: Female

DRUGS (3)
  1. PAXIL [Suspect]
     Indication: PANIC DISORDER
     Dosage: 40MG PER DAY
     Route: 048
     Dates: start: 20010901, end: 20051106
  2. NO CONCURRENT MEDICATION [Concomitant]
  3. ALCOHOL [Concomitant]
     Route: 048

REACTIONS (6)
  - ALCOHOL POISONING [None]
  - DEPRESSION [None]
  - PANIC ATTACK [None]
  - SELF MUTILATION [None]
  - SUICIDE ATTEMPT [None]
  - WEIGHT INCREASED [None]
